FAERS Safety Report 24674323 (Version 1)
Quarter: 2024Q4

REPORT INFORMATION
  Report Type: Spontaneous
  Country: PE (occurrence: PE)
  Receive Date: 20241128
  Receipt Date: 20241128
  Transmission Date: 20250115
  Serious: Yes (Death)
  Sender: REGENERON
  Company Number: PE-BAYER-2024A167713

PATIENT
  Age: 89 Year
  Sex: Male

DRUGS (1)
  1. EYLEA [Suspect]
     Active Substance: AFLIBERCEPT
     Indication: Product used for unknown indication
     Dosage: UNK, SOLUTION FOR INJECTION, 40 MG/ML

REACTIONS (1)
  - Death [Fatal]
